FAERS Safety Report 18308974 (Version 1)
Quarter: 2020Q3

REPORT INFORMATION
  Report Type: Spontaneous
  Country: JP (occurrence: JP)
  Receive Date: 20200924
  Receipt Date: 20200924
  Transmission Date: 20201103
  Serious: Yes (Disabling)
  Sender: FDA-Public Use
  Company Number: JP-FRESENIUS KABI-FK202009793

PATIENT
  Age: 61 Year
  Sex: Male

DRUGS (5)
  1. DEXAMETHASONE. [Concomitant]
     Active Substance: DEXAMETHASONE
     Indication: PROPHYLAXIS
     Dosage: 0.8 MG IN 0.5 ML
     Route: 050
  2. MEPIVACAINE HYDROCHLORIDE. [Concomitant]
     Active Substance: MEPIVACAINE HYDROCHLORIDE
     Indication: NERVE BLOCK
     Dosage: 4?5 ML
     Route: 065
  3. SULFUR HEXAFLUORIDE [Concomitant]
     Active Substance: SULFUR HEXAFLUORIDE
     Indication: VITRECTOMY
     Dosage: GAS TAMPONADE
  4. GENTAMICIN (MANUFACTURER UNKNOWN) [Suspect]
     Active Substance: GENTAMICIN
     Indication: PROPHYLAXIS
     Dosage: 5MG IN 0.5ML
     Route: 050
  5. EPINEPHRINE/BUPIVACAINE HYDROCHLORIDE [Concomitant]
     Indication: NERVE BLOCK
     Dosage: 4?5 ML
     Route: 065

REACTIONS (1)
  - Retinal vascular occlusion [Recovered/Resolved with Sequelae]
